FAERS Safety Report 9373116 (Version 1)
Quarter: 2013Q2

REPORT INFORMATION
  Report Type: Spontaneous
  Country: CA (occurrence: CA)
  Receive Date: 20130627
  Receipt Date: 20130627
  Transmission Date: 20140414
  Serious: Yes (Other)
  Sender: FDA-Public Use
  Company Number: CA-SANOFI-AVENTIS-2013SA062077

PATIENT
  Sex: Female
  Weight: 74.5 kg

DRUGS (11)
  1. ARAVA [Suspect]
     Indication: PRODUCT USED FOR UNKNOWN INDICATION
     Route: 065
  2. ACTEMRA [Suspect]
     Indication: RHEUMATOID ARTHRITIS
     Dosage: FREQUENCY: EVERY 4 WEEKS
     Route: 042
     Dates: start: 20130425
  3. PREDNISONE [Concomitant]
  4. PLAQUENIL [Concomitant]
  5. CITALOPRAM [Concomitant]
  6. SYNTHROID [Concomitant]
  7. RABEPRAZOLE [Concomitant]
  8. ACTONEL [Concomitant]
  9. EVENING PRIMROSE OIL [Concomitant]
  10. VITAMIN C [Concomitant]
  11. TYLENOL [Concomitant]

REACTIONS (3)
  - Haematochezia [Recovered/Resolved]
  - Lower respiratory tract infection [Not Recovered/Not Resolved]
  - Renal pain [Recovered/Resolved]
